FAERS Safety Report 7018626-8 (Version None)
Quarter: 2010Q3

REPORT INFORMATION
  Report Type: 
  Country: None (occurrence: None)
  Receive Date: 20100928
  Receipt Date: 20100923
  Transmission Date: 20110219
  Serious: Yes (Life-Threatening, Hospitalization, Disabling)
  Sender: FDA-Public Use
  Company Number: US-MERCK-1009USA00780

PATIENT
  Age: 24 Year
  Sex: Female

DRUGS (5)
  1. STROMECTOL [Suspect]
     Indication: STRONGYLOIDIASIS
     Route: 048
     Dates: end: 20100907
  2. LASIX [Concomitant]
     Route: 065
  3. REGLAN [Concomitant]
     Route: 065
  4. PREVACID [Concomitant]
     Route: 065
  5. FENTANYL [Concomitant]
     Route: 065

REACTIONS (2)
  - DYSPHAGIA [None]
  - INCORRECT DOSE ADMINISTERED [None]
